FAERS Safety Report 7897052-3 (Version None)
Quarter: 2011Q4

REPORT INFORMATION
  Report Type: 
  Country: None (occurrence: None)
  Receive Date: 20111107
  Receipt Date: 20111101
  Transmission Date: 20120403
  Serious: Yes (Other)
  Sender: FDA-Public Use
  Company Number: US-VERTEX PHARMACEUTICALS INC.-AE-2011-002879

PATIENT
  Age: 50 Year
  Sex: Female

DRUGS (3)
  1. RIBA [Concomitant]
     Indication: HEPATITIS C
  2. INCIVEK [Suspect]
     Indication: HEPATITIS C
     Route: 048
  3. POLYETHYLENE GLYCOL [Concomitant]
     Indication: HEPATITIS C

REACTIONS (1)
  - STEVENS-JOHNSON SYNDROME [None]
